FAERS Safety Report 9028472 (Version 3)
Quarter: 2013Q1

REPORT INFORMATION
  Report Type: Report from Study
  Country: US (occurrence: US)
  Receive Date: 20130124
  Receipt Date: 20130315
  Transmission Date: 20140127
  Serious: Yes (Hospitalization, Other)
  Sender: FDA-Public Use
  Company Number: US-NAPPMUNDI-USA-2013-0097753

PATIENT
  Age: 32 Year
  Sex: Female

DRUGS (2)
  1. OXYCONTIN (NDA 22-272) [Suspect]
     Indication: SURGERY
     Dosage: 40 MG, Q8H
     Route: 048
  2. OXYCONTIN (NDA 22-272) [Suspect]
     Indication: PAIN

REACTIONS (9)
  - Surgery [Recovered/Resolved]
  - Nosocomial infection [Unknown]
  - Bone pain [Unknown]
  - Musculoskeletal stiffness [Unknown]
  - Pain in extremity [Unknown]
  - Back pain [Not Recovered/Not Resolved]
  - Tremor [Unknown]
  - Vomiting [Unknown]
  - Headache [Unknown]
